FAERS Safety Report 7223477-5 (Version None)
Quarter: 2011Q1

REPORT INFORMATION
  Report Type: 
  Country: None (occurrence: None)
  Receive Date: 20110112
  Receipt Date: 20100713
  Transmission Date: 20110831
  Serious: No
  Sender: FDA-Public Use
  Company Number: US-ALLERGAN-1009043US

PATIENT
  Age: 79 Year
  Sex: Female

DRUGS (2)
  1. RESTASIS [Suspect]
     Indication: DRY EYE
     Dosage: 1 GTT, BID
     Route: 047
     Dates: end: 20100712
  2. GENTEAL [Concomitant]
     Indication: DRY EYE
     Dosage: 1 GTT, QD
     Route: 047

REACTIONS (6)
  - EYE DISCHARGE [None]
  - VISION BLURRED [None]
  - EYE IRRITATION [None]
  - SENSATION OF FOREIGN BODY [None]
  - OCULAR HYPERAEMIA [None]
  - LACRIMATION INCREASED [None]
